FAERS Safety Report 23209837 (Version 2)
Quarter: 2023Q4

REPORT INFORMATION
  Report Type: Spontaneous
  Country: DE (occurrence: DE)
  Receive Date: 20231121
  Receipt Date: 20231123
  Transmission Date: 20240109
  Serious: Yes (Other)
  Sender: FDA-Public Use
  Company Number: None

PATIENT
  Age: 72 Year
  Sex: Male
  Weight: 110 kg

DRUGS (4)
  1. PREGABALIN [Suspect]
     Active Substance: PREGABALIN
     Indication: Neuralgia
     Dosage: 3 X TGL. 1 (3 X DAILY 1)
     Route: 048
     Dates: start: 20231025, end: 20231027
  2. PREGABALIN [Suspect]
     Active Substance: PREGABALIN
     Indication: Spinal pain
  3. PREGABALIN [Suspect]
     Active Substance: PREGABALIN
     Indication: Spinal stenosis
  4. ASPIRIN [Concomitant]
     Active Substance: ASPIRIN
     Indication: Product used for unknown indication
     Dosage: 1X TGL

REACTIONS (8)
  - Rectal haemorrhage [Recovering/Resolving]
  - Haematochezia [Recovering/Resolving]
  - Malaise [Recovering/Resolving]
  - Restlessness [Recovering/Resolving]
  - Hypertension [Recovering/Resolving]
  - Nasal congestion [Not Recovered/Not Resolved]
  - Chills [Recovered/Resolved]
  - Muscle twitching [Recovered/Resolved]

NARRATIVE: CASE EVENT DATE: 20231001
